FAERS Safety Report 13577392 (Version 1)
Quarter: 2017Q2

REPORT INFORMATION
  Report Type: Spontaneous
  Country: US (occurrence: US)
  Receive Date: 20170524
  Receipt Date: 20170524
  Transmission Date: 20170830
  Serious: Yes (Other)
  Sender: FDA-Public Use
  Company Number: US-SAOL THERAPEUTICS-2017SAO00486

PATIENT
  Sex: Male
  Weight: 72.56 kg

DRUGS (14)
  1. BACLOFEN. [Suspect]
     Active Substance: BACLOFEN
     Indication: MUSCLE SPASTICITY
     Dosage: UNK
     Route: 037
     Dates: start: 20071003
  2. MIRALAX [Concomitant]
     Active Substance: POLYETHYLENE GLYCOL 3350
  3. FOLTX [Concomitant]
     Active Substance: CYANOCOBALAMIN CO-57\FOLIC ACID\PYRIDOXINE HYDROCHLORIDE
  4. LEXAPRO [Concomitant]
     Active Substance: ESCITALOPRAM OXALATE
  5. BUPRENORPHINE. [Concomitant]
     Active Substance: BUPRENORPHINE
  6. IRON [Concomitant]
     Active Substance: IRON
  7. TOPAMAX [Concomitant]
     Active Substance: TOPIRAMATE
  8. BACLOFEN. [Suspect]
     Active Substance: BACLOFEN
     Indication: HEAD INJURY
     Dosage: UNK
  9. KLONOPIN [Concomitant]
     Active Substance: CLONAZEPAM
  10. VITAMIN C [Concomitant]
     Active Substance: ASCORBIC ACID
  11. AMITIZA [Concomitant]
     Active Substance: LUBIPROSTONE
  12. LYRICA [Concomitant]
     Active Substance: PREGABALIN
  13. VOLTAREN [Concomitant]
     Active Substance: DICLOFENAC SODIUM
  14. CYMBALTA [Concomitant]
     Active Substance: DULOXETINE HYDROCHLORIDE

REACTIONS (2)
  - Musculoskeletal pain [Unknown]
  - Neuralgia [Unknown]

NARRATIVE: CASE EVENT DATE: 2016
